FAERS Safety Report 25591827 (Version 1)
Quarter: 2025Q3

REPORT INFORMATION
  Report Type: Report from Study
  Country: US (occurrence: US)
  Receive Date: 20250722
  Receipt Date: 20250722
  Transmission Date: 20251021
  Serious: No
  Sender: VANDA PHARMACEUTICALS
  Company Number: US-VANDA PHARMACEUTICALS, INC-2024TASUS007491

PATIENT
  Sex: Male
  Weight: 107.94 kg

DRUGS (3)
  1. HETLIOZ LQ [Suspect]
     Active Substance: TASIMELTEON
     Indication: Non-24-hour sleep-wake disorder
     Dosage: 5 MILLILITER, QD (20 MG) AT THE SAME TIME EVERY NIGHT BEFORE BED WITHOUT FOOD
     Route: 048
  2. PROBIOTIC 10 [BIFIDOBACTERIUM BIFIDUM;BIFIDOBACTERIUM LACTIS;LACTIPLAN [Concomitant]
     Indication: Product used for unknown indication
  3. ALLEGRA ALLERGY [Concomitant]
     Active Substance: FEXOFENADINE HYDROCHLORIDE
     Indication: Product used for unknown indication

REACTIONS (2)
  - Incorrect dose administered [Unknown]
  - Intentional underdose [Unknown]
